FAERS Safety Report 7674042-7 (Version None)
Quarter: 2011Q3

REPORT INFORMATION
  Report Type: 
  Country: None (occurrence: None)
  Receive Date: 20110810
  Receipt Date: 20110805
  Transmission Date: 20111222
  Serious: Yes (Other)
  Sender: FDA-Public Use
  Company Number: US-AMGEN-USASP2011036198

PATIENT
  Age: 50 Year
  Sex: Male

DRUGS (3)
  1. DANAZOL [Concomitant]
     Dosage: UNK
     Dates: start: 20091101
  2. CORTICOSTEROIDS [Concomitant]
     Dosage: UNK
     Dates: start: 20060101
  3. NPLATE [Suspect]
     Indication: THROMBOCYTOPENIA
     Dosage: 425 A?G, UNK
     Dates: start: 20100620, end: 20100818

REACTIONS (2)
  - THERAPEUTIC RESPONSE DECREASED [None]
  - DRUG INEFFECTIVE [None]
